FAERS Safety Report 21192138 (Version 2)
Quarter: 2022Q3

REPORT INFORMATION
  Report Type: Spontaneous
  Country: CA (occurrence: CA)
  Receive Date: 20220809
  Receipt Date: 20220812
  Transmission Date: 20221027
  Serious: Yes (Death, Other)
  Sender: FDA-Public Use
  Company Number: CA-PFIZER INC-2020469477

PATIENT
  Age: 79 Year
  Sex: Male

DRUGS (4)
  1. XELJANZ [Suspect]
     Active Substance: TOFACITINIB CITRATE
     Indication: Polychondritis
     Dosage: 5 MG, 1X/DAY
     Route: 048
     Dates: start: 202010
  2. XELJANZ [Suspect]
     Active Substance: TOFACITINIB CITRATE
     Dosage: 5 MG, 2X/DAY
     Route: 048
     Dates: start: 20210210
  3. PREDNISONE [Concomitant]
     Active Substance: PREDNISONE
     Indication: Polychondritis
     Dosage: 40 MG, DAILY
  4. TACROLIMUS [Concomitant]
     Active Substance: TACROLIMUS
     Indication: Polychondritis
     Dosage: 5 MG ^SPLIT DOSE^

REACTIONS (4)
  - Death [Fatal]
  - Off label use [Unknown]
  - Macule [Unknown]
  - Pain of skin [Unknown]

NARRATIVE: CASE EVENT DATE: 20220701
